FAERS Safety Report 6026983-4 (Version None)
Quarter: 2009Q1

REPORT INFORMATION
  Report Type: 
  Country: None (occurrence: None)
  Receive Date: 20090105
  Receipt Date: 20081221
  Transmission Date: 20090719
  Serious: Yes (Other)
  Sender: FDA-Public Use
  Company Number: FR-PFIZER INC-2008158615

PATIENT

DRUGS (3)
  1. SUTENT [Suspect]
     Indication: RENAL CELL CARCINOMA
     Dosage: 50 MG, 1X/DAY
     Dates: start: 20081119, end: 20081217
  2. ENDOXAN [Concomitant]
     Dosage: 50 MG, 1X/DAY
  3. METHOTREXATE [Concomitant]
     Dosage: 5 MG, TWICE PER WEEK

REACTIONS (2)
  - HYPOTENSION [None]
  - SYNCOPE [None]
